FAERS Safety Report 7004542-4 (Version None)
Quarter: 2010Q3

REPORT INFORMATION
  Report Type: 
  Country: None (occurrence: None)
  Receive Date: 20100921
  Receipt Date: 20100909
  Transmission Date: 20110219
  Serious: No
  Sender: FDA-Public Use
  Company Number: 2008BI015608

PATIENT
  Age: 48 Year
  Sex: Male

DRUGS (4)
  1. TYSABRI [Suspect]
     Indication: MULTIPLE SCLEROSIS
     Route: 042
     Dates: start: 20080522
  2. TYSABRI [Suspect]
     Route: 042
  3. AVONEX [Concomitant]
     Indication: MULTIPLE SCLEROSIS
     Route: 030
     Dates: start: 20030223
  4. AVONEX [Concomitant]
     Route: 030
     Dates: start: 20080501

REACTIONS (3)
  - ASTHENIA [None]
  - FATIGUE [None]
  - STRESS [None]
